FAERS Safety Report 5351151-9 (Version None)
Quarter: 2007Q2

REPORT INFORMATION
  Report Type: 
  Country: None (occurrence: None)
  Receive Date: 20070608
  Receipt Date: 20070530
  Transmission Date: 20071010
  Serious: Yes (Other)
  Sender: FDA-Public Use
  Company Number: US-PFIZER INC-2007039977

PATIENT
  Sex: Female
  Weight: 54.09 kg

DRUGS (7)
  1. LYRICA [Suspect]
     Indication: NEUROPATHY
  2. LYRICA [Suspect]
     Indication: BURNING SENSATION
  3. ALL OTHER THERAPEUTIC PRODUCTS [Concomitant]
  4. ARICEPT [Concomitant]
     Indication: DEMENTIA
  5. CARTIA XT [Concomitant]
     Indication: CARDIAC DISORDER
  6. ASPIRIN [Concomitant]
  7. VITAMIN CAP [Concomitant]

REACTIONS (2)
  - FEELING ABNORMAL [None]
  - MAJOR DEPRESSION [None]
